FAERS Safety Report 5995365-3 (Version None)
Quarter: 2008Q4

REPORT INFORMATION
  Report Type: 
  Country: None (occurrence: None)
  Receive Date: 20081212
  Receipt Date: 20080929
  Transmission Date: 20090506
  Serious: No
  Sender: FDA-Public Use
  Company Number: US-ABBOTT-08P-163-0478712-00

PATIENT
  Sex: Male

DRUGS (1)
  1. HUMIRA [Suspect]
     Indication: CROHN'S DISEASE
     Dates: start: 20070821

REACTIONS (4)
  - ABDOMINAL PAIN UPPER [None]
  - CROHN'S DISEASE [None]
  - MALAISE [None]
  - VOMITING [None]
